FAERS Safety Report 14210721 (Version 2)
Quarter: 2017Q4

REPORT INFORMATION
  Report Type: Spontaneous
  Country: TH (occurrence: TH)
  Receive Date: 20171121
  Receipt Date: 20171127
  Transmission Date: 20180321
  Serious: Yes (Hospitalization)
  Sender: FDA-Public Use
  Company Number: TH-JNJFOC-20171120512

PATIENT
  Age: 53 Year
  Sex: Female

DRUGS (1)
  1. STELARA [Suspect]
     Active Substance: USTEKINUMAB
     Indication: PSORIASIS
     Route: 058

REACTIONS (4)
  - Blood magnesium decreased [Unknown]
  - Seizure [Recovering/Resolving]
  - Blood calcium decreased [Unknown]
  - Platelet count decreased [Unknown]
